FAERS Safety Report 11430409 (Version 1)
Quarter: 2015Q3

REPORT INFORMATION
  Report Type: Spontaneous
  Country: US (occurrence: US)
  Receive Date: 20150828
  Receipt Date: 20150828
  Transmission Date: 20151125
  Serious: No
  Sender: FDA-Public Use
  Company Number: US-ROCHE-1191488

PATIENT
  Sex: Female

DRUGS (3)
  1. PEGASYS [Suspect]
     Active Substance: PEGINTERFERON ALFA-2A
     Indication: CHRONIC HEPATITIS C
     Route: 058
     Dates: start: 20130201
  2. TELAPREVIR [Suspect]
     Active Substance: TELAPREVIR
     Indication: CHRONIC HEPATITIS C
     Route: 048
     Dates: start: 20130201
  3. COPEGUS [Suspect]
     Active Substance: RIBAVIRIN
     Indication: CHRONIC HEPATITIS C
     Dosage: IN DIVIDED DOSES 600/400
     Route: 048
     Dates: start: 20130201

REACTIONS (10)
  - Decreased appetite [Unknown]
  - Blood pressure abnormal [Unknown]
  - Nausea [Unknown]
  - Renal disorder [Unknown]
  - Pruritus [Unknown]
  - Tremor [Unknown]
  - Hypoaesthesia oral [Unknown]
  - Cardiac disorder [Unknown]
  - Vomiting [Unknown]
  - Insomnia [Unknown]
